FAERS Safety Report 20904844 (Version 1)
Quarter: 2022Q2

REPORT INFORMATION
  Report Type: Spontaneous
  Country: US (occurrence: US)
  Receive Date: 20220602
  Receipt Date: 20220602
  Transmission Date: 20220721
  Serious: Yes (Other)
  Sender: FDA-Public Use
  Company Number: US-ADMA BIOLOGICS INC.-US-2022ADM000034

PATIENT
  Sex: Male

DRUGS (1)
  1. ASCENIV [Suspect]
     Active Substance: HUMAN IMMUNOGLOBULIN G
     Indication: Product used for unknown indication
     Dosage: UNK DOSE, 2 HOURS

REACTIONS (4)
  - Sepsis [Unknown]
  - Meningitis [Unknown]
  - Headache [Unknown]
  - Illness [Unknown]
